FAERS Safety Report 11128169 (Version 1)
Quarter: 2015Q2

REPORT INFORMATION
  Report Type: Spontaneous
  Country: BR (occurrence: None)
  Receive Date: 20150519
  Receipt Date: 20150519
  Transmission Date: 20150821
  Serious: Yes (Other)
  Sender: FDA-Public Use
  Company Number: BR2015GSK064223

PATIENT
  Age: 61 Year
  Sex: Male

DRUGS (7)
  1. OLMETEC [Suspect]
     Active Substance: OLMESARTAN MEDOXOMIL
     Route: 048
     Dates: start: 2009
  2. BIOVIR [Suspect]
     Active Substance: LAMIVUDINE\ZIDOVUDINE
     Indication: HIV INFECTION
     Dates: start: 200803
  3. TENOFOVIR DISOPROXIL FUMARATE [Concomitant]
     Active Substance: TENOFOVIR DISOPROXIL FUMARATE
  4. RITONAVIR. [Concomitant]
     Active Substance: RITONAVIR
  5. LAMIVUDINE. [Concomitant]
     Active Substance: LAMIVUDINE
  6. EPIVIR [Suspect]
     Active Substance: LAMIVUDINE
     Indication: HIV INFECTION
     Dates: start: 200803
  7. DARUNAVIR [Concomitant]
     Active Substance: DARUNAVIR

REACTIONS (3)
  - Optic ischaemic neuropathy [None]
  - Visual acuity reduced [None]
  - Thrombosis [None]

NARRATIVE: CASE EVENT DATE: 20150325
